FAERS Safety Report 24652761 (Version 1)
Quarter: 2024Q4

REPORT INFORMATION
  Report Type: Spontaneous
  Country: US (occurrence: None)
  Receive Date: 20241122
  Receipt Date: 20241122
  Transmission Date: 20250114
  Serious: Yes (Life-Threatening, Hospitalization)
  Sender: Public
  Company Number: None

PATIENT
  Age: 81 Year
  Sex: Male

DRUGS (6)
  1. APIXABAN [Suspect]
     Active Substance: APIXABAN
     Indication: Atrial fibrillation
     Dosage: FREQUENCY : TWICE A DAY;?
     Route: 048
  2. CLOPIDOGREL BISULFATE [Suspect]
     Active Substance: CLOPIDOGREL BISULFATE
     Indication: Vascular operation
     Dosage: FREQUENCY : DAILY;?
     Route: 048
     Dates: end: 20241030
  3. SULFASALAZINE [Concomitant]
  4. HYDRALAZINE [Concomitant]
  5. AMIODARONE [Concomitant]
  6. METOPROLOL [Concomitant]

REACTIONS (6)
  - Gastrointestinal haemorrhage [None]
  - Iron deficiency anaemia [None]
  - Blood loss anaemia [None]
  - Gastric polyps [None]
  - Gastritis [None]
  - Acute kidney injury [None]

NARRATIVE: CASE EVENT DATE: 20241030
